FAERS Safety Report 8581706-X (Version None)
Quarter: 2012Q2

REPORT INFORMATION
  Report Type: 
  Country: None (occurrence: None)
  Receive Date: 20120423
  Receipt Date: 20100719
  Transmission Date: 20120825
  Serious: Yes (Hospitalization)
  Sender: FDA-Public Use
  Company Number: PHHY2010US47413

PATIENT
  Age: 57 Year
  Sex: Male

DRUGS (4)
  1. EXJADE [Suspect]
  2. LISINOPRIL [Concomitant]
  3. LORESTAT (TOLRESTAT) [Concomitant]
  4. LOPRESSOR [Concomitant]

REACTIONS (1)
  - SICKLE CELL ANAEMIA WITH CRISIS [None]
